FAERS Safety Report 6860886-8 (Version None)
Quarter: 2010Q3

REPORT INFORMATION
  Report Type: 
  Country: None (occurrence: None)
  Receive Date: 20100720
  Receipt Date: 20100706
  Transmission Date: 20110219
  Serious: Yes (Hospitalization)
  Sender: FDA-Public Use
  Company Number: US-ELI_LILLY_AND_COMPANY-US201006000952

PATIENT
  Sex: Female

DRUGS (7)
  1. FORTEO [Suspect]
     Indication: OSTEOPOROSIS
     Dosage: 20 UG, DAILY (1/D)
  2. AMLODIPINE [Concomitant]
  3. PLAVIX [Concomitant]
  4. PEPCID [Concomitant]
  5. COLCHICINE [Concomitant]
  6. ATIVAN [Concomitant]
  7. ADVIL LIQUI-GELS [Concomitant]

REACTIONS (4)
  - DEATH OF RELATIVE [None]
  - GALLBLADDER DISORDER [None]
  - PNEUMONIA [None]
  - STRESS [None]
